FAERS Safety Report 6253435-9 (Version None)
Quarter: 2009Q2

REPORT INFORMATION
  Report Type: 
  Country: None (occurrence: None)
  Receive Date: 20090626
  Receipt Date: 20090205
  Transmission Date: 20091009
  Serious: Yes (Hospitalization)
  Sender: FDA-Public Use
  Company Number: 612896

PATIENT
  Age: 83 Year
  Sex: Female
  Weight: 116 kg

DRUGS (2)
  1. XELODA [Suspect]
     Indication: COLORECTAL CANCER METASTATIC
     Dosage: 2500 MG DAILY 1 PER 14 DAY ORAL
     Route: 048
     Dates: start: 20081203
  2. OXALIPLATIN [Suspect]
     Indication: COLORECTAL CANCER METASTATIC
     Dosage: 125 MG 1 PER 3 WEEK INTRAVENOUS
     Route: 042
     Dates: start: 20081203, end: 20081221

REACTIONS (8)
  - ANOREXIA [None]
  - DIARRHOEA [None]
  - DRUG TOXICITY [None]
  - HYPOKALAEMIA [None]
  - MALNUTRITION [None]
  - PANCYTOPENIA [None]
  - PYREXIA [None]
  - STOMATITIS [None]
